FAERS Safety Report 10114426 (Version 1)
Quarter: 2014Q2

REPORT INFORMATION
  Report Type: Spontaneous
  Country: US (occurrence: US)
  Receive Date: 20140425
  Receipt Date: 20140425
  Transmission Date: 20141212
  Serious: No
  Sender: FDA-Public Use
  Company Number: US-009507513-1404USA000902

PATIENT
  Age: 93 Year
  Sex: Female

DRUGS (1)
  1. MIRALAX [Suspect]
     Indication: ILL-DEFINED DISORDER
     Dosage: UNK, UNKNOWN
     Route: 048

REACTIONS (1)
  - Unevaluable event [Unknown]
